FAERS Safety Report 24179489 (Version 1)
Quarter: 2024Q3

REPORT INFORMATION
  Report Type: Spontaneous
  Country: US (occurrence: US)
  Receive Date: 20240806
  Receipt Date: 20240806
  Transmission Date: 20241017
  Serious: No
  Sender: PFIZER
  Company Number: US-PFIZER INC-202400230050

PATIENT
  Age: 63 Year
  Sex: Male

DRUGS (1)
  1. VELSIPITY [Suspect]
     Active Substance: ETRASIMOD ARGININE
     Dosage: 1 DF, 1X/DAY, (1 TABLET BY MOUTH DAILY)
     Route: 048

REACTIONS (1)
  - Drug ineffective [Unknown]
